FAERS Safety Report 8793548 (Version 4)
Quarter: 2012Q4

REPORT INFORMATION
  Report Type: Report from Study
  Country: IT (occurrence: IT)
  Receive Date: 20120917
  Receipt Date: 20121105
  Transmission Date: 20130627
  Serious: Yes (Other)
  Sender: FDA-Public Use
  Company Number: IT-GLAXOSMITHKLINE-B0830434A

PATIENT
  Age: 71 Year
  Sex: Male
  Weight: 77 kg

DRUGS (6)
  1. OFATUMUMAB [Suspect]
     Indication: MANTLE CELL LYMPHOMA
     Dates: start: 20120118, end: 20120507
  2. BENDAMUSTINE [Suspect]
     Indication: MANTLE CELL LYMPHOMA
     Dates: start: 20120119, end: 20120509
  3. DEXAMETHASONE [Suspect]
     Indication: MANTLE CELL LYMPHOMA
     Dosage: 8MG Cyclic
     Dates: start: 20120118, end: 20120509
  4. BACTRIM [Concomitant]
  5. ZELITREX [Concomitant]
  6. ITRACONAZOLE [Concomitant]

REACTIONS (1)
  - Eye disorder [Recovered/Resolved]
